FAERS Safety Report 7360997-7 (Version None)
Quarter: 2011Q1

REPORT INFORMATION
  Report Type: 
  Country: None (occurrence: None)
  Receive Date: 20110318
  Receipt Date: 20110314
  Transmission Date: 20110831
  Serious: Yes (Death, Hospitalization, Other)
  Sender: FDA-Public Use
  Company Number: BR-ROCHE-595677

PATIENT
  Sex: Female

DRUGS (13)
  1. PANTOPRAZOLE [Suspect]
     Route: 048
     Dates: start: 20050501, end: 20081028
  2. MORPHINE [Suspect]
     Route: 048
     Dates: start: 20080601, end: 20081007
  3. GERIATON [Suspect]
     Indication: VITAMIN SUPPLEMENTATION
     Route: 048
     Dates: start: 20080701, end: 20081028
  4. DEXCLORFENIRAMINA [Concomitant]
     Route: 048
     Dates: start: 20081006, end: 20081006
  5. FLUOXETINE HCL [Suspect]
     Indication: FIBROMYALGIA
     Route: 048
     Dates: start: 19920101
  6. SITAGLIPTIN PHOSPHATE [Suspect]
     Indication: DIABETES MELLITUS
     Route: 048
     Dates: start: 20070101, end: 20081028
  7. DOMPERIDONE [Suspect]
     Route: 048
     Dates: start: 20050501, end: 20081028
  8. BISOPROLOL FUMARATE [Suspect]
     Indication: MITRAL VALVE PROLAPSE
     Route: 048
     Dates: start: 20060901, end: 20081028
  9. ETORICOXIB [Concomitant]
     Route: 048
     Dates: start: 20080701, end: 20081007
  10. CAPECITABINE [Suspect]
     Indication: BREAST CANCER
     Dosage: DOSE: 2 IN . OTHER: INFUSION
     Route: 042
     Dates: start: 20081007, end: 20081021
  11. ALPRAZOLAM [Suspect]
     Indication: ANXIETY
     Route: 048
     Dates: start: 20001001, end: 20081028
  12. ZOLPIDEM [Suspect]
     Indication: INSOMNIA
     Route: 048
     Dates: start: 20050701, end: 20081028
  13. MORPHINE [Suspect]
     Route: 048
     Dates: start: 20081008, end: 20081028

REACTIONS (3)
  - DEATH [None]
  - DEHYDRATION [None]
  - RESPIRATORY FAILURE [None]
